FAERS Safety Report 9003782 (Version 1)
Quarter: 2013Q1

REPORT INFORMATION
  Report Type: Spontaneous
  Country: US (occurrence: US)
  Receive Date: 20130108
  Receipt Date: 20130108
  Transmission Date: 20140127
  Serious: No
  Sender: FDA-Public Use
  Company Number: US-GLAXOSMITHKLINE-A0978414A

PATIENT
  Age: 50 Year
  Sex: Male

DRUGS (12)
  1. LOVAZA [Suspect]
     Indication: BLOOD TRIGLYCERIDES INCREASED
     Dosage: 2CAP TWICE PER DAY
     Route: 048
     Dates: start: 201203, end: 20120502
  2. LASIX [Concomitant]
  3. LIPITOR [Concomitant]
  4. VITAMIN E [Concomitant]
  5. BABY ASPIRIN [Concomitant]
  6. METOPROLOL [Concomitant]
  7. METFORMIN [Concomitant]
  8. UNKNOWN MEDICATION [Concomitant]
  9. LUNESTA [Concomitant]
  10. XANAX [Concomitant]
  11. POTASSIUM [Concomitant]
  12. ALEVE [Concomitant]

REACTIONS (6)
  - Diarrhoea [Not Recovered/Not Resolved]
  - Eructation [Unknown]
  - Fatigue [Unknown]
  - Abdominal distension [Unknown]
  - Swelling [Unknown]
  - Myalgia [Unknown]
